FAERS Safety Report 11899074 (Version 1)
Quarter: 2016Q1

REPORT INFORMATION
  Report Type: Spontaneous
  Country: US (occurrence: US)
  Receive Date: 20160108
  Receipt Date: 20160108
  Transmission Date: 20160526
  Serious: No
  Sender: FDA-Public Use
  Company Number: US-ASTRAZENECA-2006BM02372

PATIENT
  Age: 52 Year
  Sex: Male
  Weight: 97.1 kg

DRUGS (8)
  1. OXYCODONE [Concomitant]
     Active Substance: OXYCODONE
     Dates: end: 20151229
  2. METFORMIN [Concomitant]
     Active Substance: METFORMIN HYDROCHLORIDE
     Route: 048
     Dates: end: 200601
  3. BYETTA [Suspect]
     Active Substance: EXENATIDE
     Indication: TYPE 2 DIABETES MELLITUS
     Route: 058
     Dates: start: 200601
  4. MOVANTIK [Suspect]
     Active Substance: NALOXEGOL OXALATE
     Indication: CONSTIPATION
     Route: 048
     Dates: start: 20151229, end: 20151229
  5. ACTOS [Concomitant]
     Active Substance: PIOGLITAZONE HYDROCHLORIDE
     Route: 048
     Dates: end: 200601
  6. GLUCOTROL [Concomitant]
     Active Substance: GLIPIZIDE
     Route: 048
     Dates: start: 200601
  7. ACTOPLUSMET [Concomitant]
     Route: 048
     Dates: start: 200601
  8. OXYCODONE [Concomitant]
     Active Substance: OXYCODONE
     Dates: end: 20151229

REACTIONS (9)
  - Tremor [Unknown]
  - Blood glucose increased [Not Recovered/Not Resolved]
  - Adverse event [Unknown]
  - Abdominal pain upper [Not Recovered/Not Resolved]
  - Feeling cold [Unknown]
  - Panic disorder [Unknown]
  - Dyspepsia [Unknown]
  - Decreased appetite [Not Recovered/Not Resolved]
  - Bowel movement irregularity [Unknown]

NARRATIVE: CASE EVENT DATE: 200601
